FAERS Safety Report 24586909 (Version 2)
Quarter: 2025Q3

REPORT INFORMATION
  Report Type: Report from Study
  Country: IN (occurrence: IN)
  Receive Date: 20241107
  Receipt Date: 20250803
  Transmission Date: 20251021
  Serious: Yes (Hospitalization, Other)
  Sender: ALEXION PHARMACEUTICALS
  Company Number: IN-AstraZeneca-CH-00725763A

PATIENT
  Age: 62 Year
  Sex: Male
  Weight: 70 kg

DRUGS (2)
  1. OSIMERTINIB [Suspect]
     Active Substance: OSIMERTINIB
     Indication: Metastatic neoplasm
     Dosage: 80 MILLIGRAM, QD
  2. AFATINIB [Concomitant]
     Active Substance: AFATINIB

REACTIONS (3)
  - Disease progression [Not Recovered/Not Resolved]
  - Ascites [Not Recovered/Not Resolved]
  - Immunoadsorption therapy [Not Recovered/Not Resolved]
